FAERS Safety Report 21498515 (Version 2)
Quarter: 2022Q4

REPORT INFORMATION
  Report Type: Report from Study
  Country: US (occurrence: US)
  Receive Date: 20221024
  Receipt Date: 20221114
  Transmission Date: 20230112
  Serious: Yes (Other)
  Sender: FDA-Public Use
  Company Number: US-MYLANLABS-2022M1116768

PATIENT
  Sex: Female

DRUGS (6)
  1. FUROSEMIDE [Suspect]
     Active Substance: FUROSEMIDE
     Indication: Product used for unknown indication
     Dosage: UNK
     Route: 065
  2. DILTIAZEM [Suspect]
     Active Substance: DILTIAZEM
     Indication: Product used for unknown indication
     Dosage: UNK
     Route: 065
  3. MACITENTAN [Suspect]
     Active Substance: MACITENTAN
     Indication: Pulmonary arterial hypertension
     Dosage: UNK (START DATE: 22-JUN-2022)
     Route: 048
  4. MACITENTAN [Suspect]
     Active Substance: MACITENTAN
     Dosage: START DATE: AUG-2022 UNK UNK, QOD (EVERY OTHER DAY AS OFF LABEL DOSING)
     Route: 048
     Dates: end: 20220912
  5. MACITENTAN [Suspect]
     Active Substance: MACITENTAN
     Dosage: 10 MILLIGRAM, QD (10 MG 1 IN 1D), START DATE: 12-SEP-2022
     Route: 048
  6. MACITENTAN [Suspect]
     Active Substance: MACITENTAN
     Dosage: UNK
     Route: 065

REACTIONS (8)
  - Pneumonia [Recovering/Resolving]
  - Haemoglobin decreased [Recovering/Resolving]
  - Oxygen saturation decreased [Unknown]
  - Heart rate increased [Unknown]
  - Oedema [Unknown]
  - Asthenia [Unknown]
  - Off label use [Unknown]
  - Fluid retention [Recovered/Resolved]

NARRATIVE: CASE EVENT DATE: 20220101
